FAERS Safety Report 10034725 (Version 1)
Quarter: 2014Q1

REPORT INFORMATION
  Report Type: Spontaneous
  Country: US (occurrence: None)
  Receive Date: 20140306
  Receipt Date: 20140306
  Transmission Date: 20141002
  Serious: Yes (Hospitalization)
  Sender: FDA-Public Use
  Company Number: 163-21880-12123458

PATIENT
  Age: 87 Year
  Sex: Female
  Weight: 58.06 kg

DRUGS (10)
  1. REVLIMID (LENALIDOMIDE) (10 MILLIGRAM, CAPSULES) [Suspect]
     Indication: PLASMA CELL MYELOMA
     Route: 048
     Dates: start: 20101116, end: 2011
  2. CENTRUM SILVER [Concomitant]
  3. DEXAMETHASONE [Concomitant]
  4. FLUDROCORTISONE [Concomitant]
  5. GABAPENTIN [Concomitant]
  6. PRESERVISION AREDS (VITEYES) [Concomitant]
  7. QVAR (BECLOMETASONE DIPROPIONATE) [Concomitant]
  8. VITAMIN D (ERGOCALCIFEROL) [Concomitant]
  9. ZOCOR (SIMVASTATIN) [Concomitant]
  10. ZOLOFT (SERTRALINE HYDROCHLORIDE) [Concomitant]

REACTIONS (2)
  - Blood pressure abnormal [None]
  - Transient ischaemic attack [None]
